FAERS Safety Report 7001460-2 (Version None)
Quarter: 2010Q3

REPORT INFORMATION
  Report Type: 
  Country: None (occurrence: None)
  Receive Date: 20100920
  Receipt Date: 20100408
  Transmission Date: 20110219
  Serious: Yes (Hospitalization)
  Sender: FDA-Public Use
  Company Number: US-ASTRAZENECA-2010SE15367

PATIENT
  Age: 26 Year
  Sex: Female
  Weight: 117.9 kg

DRUGS (6)
  1. SEROQUEL [Suspect]
     Indication: BIPOLAR DISORDER
     Route: 048
  2. SEROQUEL [Suspect]
     Route: 048
     Dates: start: 20100320, end: 20100320
  3. SEROQUEL [Suspect]
     Route: 048
     Dates: start: 20100320, end: 20100320
  4. SEROQUEL [Suspect]
     Route: 048
     Dates: start: 20100301
  5. ZANTAC [Concomitant]
  6. ZYRTEC [Concomitant]

REACTIONS (4)
  - AGITATION [None]
  - AMNESIA [None]
  - DELUSION [None]
  - INSOMNIA [None]
